FAERS Safety Report 11321325 (Version 2)
Quarter: 2016Q4

REPORT INFORMATION
  Report Type: Spontaneous
  Country: CA (occurrence: CA)
  Receive Date: 20150729
  Receipt Date: 20161216
  Transmission Date: 20170206
  Serious: Yes (Death, Hospitalization, Other)
  Sender: FDA-Public Use
  Company Number: CA-GLAXOSMITHKLINE-CA2015GSK107963

PATIENT
  Age: 39 Year
  Sex: Female

DRUGS (11)
  1. ZANAMIVIR [Suspect]
     Active Substance: ZANAMIVIR
     Dosage: 600 MG, BID
     Route: 042
     Dates: start: 20130110
  2. OSELTAMIVIR [Suspect]
     Active Substance: OSELTAMIVIR
     Dosage: UNK
     Route: 065
     Dates: start: 20130124
  3. ZANAMIVIR [Suspect]
     Active Substance: ZANAMIVIR
     Dosage: UNK
     Route: 042
  4. OSELTAMIVIR [Suspect]
     Active Substance: OSELTAMIVIR
     Dosage: UNK
     Route: 065
  5. ZANAMIVIR [Suspect]
     Active Substance: ZANAMIVIR
     Indication: INFLUENZA
     Dosage: 10 MG, BID
     Route: 055
     Dates: start: 20130102
  6. ALEMTUZUMAB [Suspect]
     Active Substance: ALEMTUZUMAB
     Indication: PRODUCT USED FOR UNKNOWN INDICATION
     Route: 042
  7. CICLOSPORIN [Suspect]
     Active Substance: CYCLOSPORINE
     Indication: ACUTE LYMPHOCYTIC LEUKAEMIA
  8. METHYLPREDNISOLONE. [Suspect]
     Active Substance: METHYLPREDNISOLONE
     Indication: PRODUCT USED FOR UNKNOWN INDICATION
     Dosage: 2 MG/KG, 1D
     Route: 042
  9. MYCOPHENOLATE MOFETIL. [Suspect]
     Active Substance: MYCOPHENOLATE MOFETIL
     Indication: ACUTE LYMPHOCYTIC LEUKAEMIA
  10. OSELTAMIVIR [Suspect]
     Active Substance: OSELTAMIVIR
     Indication: INFLUENZA
     Dosage: 75 MG, BID
     Route: 048
  11. OSELTAMIVIR [Suspect]
     Active Substance: OSELTAMIVIR
     Dosage: 150 MG, BID (DOSE INCREASED)
     Route: 048
     Dates: start: 20121227

REACTIONS (12)
  - Productive cough [Unknown]
  - Drug ineffective [Unknown]
  - Respiratory disorder [Unknown]
  - Cytomegalovirus infection [Unknown]
  - Legionella infection [Fatal]
  - Respiratory depression [Unknown]
  - Viral mutation identified [Unknown]
  - Graft versus host disease [Fatal]
  - Cystitis haemorrhagic [Unknown]
  - Pathogen resistance [Unknown]
  - Pseudomonas infection [Fatal]
  - Dyspnoea [Unknown]
